FAERS Safety Report 9506337 (Version 1)
Quarter: 2013Q1

REPORT INFORMATION
  Report Type: Spontaneous
  Country: US (occurrence: None)
  Receive Date: 20130305
  Receipt Date: 20130305
  Transmission Date: 20140127
  Serious: Yes (Hospitalization)
  Sender: FDA-Public Use
  Company Number: 163-21880-12050348

PATIENT
  Age: 62 Year
  Sex: Male

DRUGS (11)
  1. REVLIMID (LENALIDOMIDE) (25 MILLIGRAM, CAPSULES) [Suspect]
     Indication: PLASMA CELL MYELOMA
     Dosage: 25 MG, DAILY X 14 DAYS, PO
     Route: 048
     Dates: start: 20120209, end: 20120517
  2. ZOMETA (ZOLEDRONIC ACID) [Concomitant]
  3. PLAVIX (CLOPIDOGREL SULFATE) [Concomitant]
  4. ACTOS (PIOGLITAZONE) [Concomitant]
  5. LOPRESSOR (METOPROLOL TARTRATE) [Concomitant]
  6. ZOCOR (SIMVASTATIN) [Concomitant]
  7. RAMIPRIL (RAMIPRIL) [Concomitant]
  8. CELEBREX (CELECOXIB) [Concomitant]
  9. SINGULAIR [Concomitant]
  10. LOPID (GEMFIBROZIL) [Concomitant]
  11. ASPIRIN (ACETYLSALICYLIC ACID) [Concomitant]

REACTIONS (7)
  - Renal failure acute [None]
  - Hypotension [None]
  - Nausea [None]
  - Vomiting [None]
  - Diarrhoea [None]
  - Clostridium difficile infection [None]
  - Pain [None]
